FAERS Safety Report 23388026 (Version 1)
Quarter: 2024Q1

REPORT INFORMATION
  Report Type: Spontaneous
  Country: US (occurrence: None)
  Receive Date: 20240109
  Receipt Date: 20240109
  Transmission Date: 20240409
  Serious: Yes (Disabling)
  Sender: FDA-Public Use
  Company Number: None

PATIENT
  Age: 89 Year
  Sex: Female
  Weight: 49.9 kg

DRUGS (9)
  1. LOSARTAN POTASSIUM [Suspect]
     Active Substance: LOSARTAN POTASSIUM
     Dosage: FREQUENCY : DAILY;?
     Route: 048
     Dates: end: 20231112
  2. replenaglide [Concomitant]
  3. levolhydroten [Concomitant]
  4. eloquist [Concomitant]
  5. hystat [Concomitant]
  6. ATORVASTATIN CALCIUM [Concomitant]
     Active Substance: ATORVASTATIN CALCIUM
  7. degorin [Concomitant]
  8. Dulitgam [Concomitant]
  9. PANTOPRAZOLE SODIUM [Concomitant]
     Active Substance: PANTOPRAZOLE SODIUM

REACTIONS (11)
  - Weight increased [None]
  - Headache [None]
  - Sinusitis [None]
  - Feeling abnormal [None]
  - Lethargy [None]
  - Lip swelling [None]
  - Swelling face [None]
  - Swollen tongue [None]
  - Asthenia [None]
  - Diarrhoea [None]
  - Therapy cessation [None]

NARRATIVE: CASE EVENT DATE: 20231001
